FAERS Safety Report 25341782 (Version 1)
Quarter: 2025Q2

REPORT INFORMATION
  Report Type: Spontaneous
  Country: CZ (occurrence: CZ)
  Receive Date: 20250521
  Receipt Date: 20250521
  Transmission Date: 20250717
  Serious: Yes (Life-Threatening, Hospitalization)
  Sender: PFIZER
  Company Number: CZ-ABBVIE-6282262

PATIENT
  Age: 68 Year
  Sex: Female

DRUGS (8)
  1. RITUXIMAB [Suspect]
     Active Substance: RITUXIMAB
     Indication: Chronic lymphocytic leukaemia
     Dates: start: 20231113
  2. RITUXIMAB [Suspect]
     Active Substance: RITUXIMAB
     Dates: start: 20231120
  3. RITUXIMAB [Suspect]
     Active Substance: RITUXIMAB
     Dates: start: 20231128
  4. RITUXIMAB [Suspect]
     Active Substance: RITUXIMAB
     Dates: start: 20240201
  5. VENETOCLAX [Suspect]
     Active Substance: VENETOCLAX
     Indication: Chronic lymphocytic leukaemia
     Route: 048
     Dates: start: 20231113
  6. VENETOCLAX [Suspect]
     Active Substance: VENETOCLAX
     Route: 048
     Dates: start: 20231120
  7. VENETOCLAX [Suspect]
     Active Substance: VENETOCLAX
     Route: 048
     Dates: start: 20231128, end: 20231230
  8. VENETOCLAX [Suspect]
     Active Substance: VENETOCLAX
     Route: 048
     Dates: start: 20240201

REACTIONS (12)
  - Haemophagocytic lymphohistiocytosis [Unknown]
  - Lymphadenopathy [Unknown]
  - Condition aggravated [Unknown]
  - Pancytopenia [Unknown]
  - Lymphadenopathy mediastinal [Unknown]
  - Fatigue [Unknown]
  - Presyncope [Unknown]
  - Systemic inflammatory response syndrome [Unknown]
  - Pyrexia [Not Recovered/Not Resolved]
  - Inflammatory marker increased [Unknown]
  - COVID-19 [Unknown]
  - Cough [Not Recovered/Not Resolved]

NARRATIVE: CASE EVENT DATE: 20231128
